FAERS Safety Report 25587880 (Version 3)
Quarter: 2025Q3

REPORT INFORMATION
  Report Type: Spontaneous
  Country: US (occurrence: US)
  Receive Date: 20250721
  Receipt Date: 20250820
  Transmission Date: 20251020
  Serious: No
  Sender: IPSEN BIOPHARMACEUTICALS, INC.
  Company Number: US-IPSEN Group, Research and Development-2025-17225

PATIENT
  Age: 28 Year
  Sex: Female
  Weight: 93 kg

DRUGS (2)
  1. SOMATULINE DEPOT [Suspect]
     Active Substance: LANREOTIDE ACETATE
     Indication: Acromegaly
     Dates: start: 20250418
  2. SOMATULINE DEPOT [Suspect]
     Active Substance: LANREOTIDE ACETATE

REACTIONS (4)
  - Dizziness [Recovered/Resolved]
  - Varicose vein [Unknown]
  - Chest discomfort [Unknown]
  - Uterine spasm [Unknown]
